FAERS Safety Report 9200369 (Version 3)
Quarter: 2014Q1

REPORT INFORMATION
  Report Type: Spontaneous
  Country: AU (occurrence: AU)
  Receive Date: 20130329
  Receipt Date: 20140210
  Transmission Date: 20141002
  Serious: Yes (Life-Threatening, Hospitalization)
  Sender: FDA-Public Use
  Company Number: AU-B.I. PHARMACEUTICALS,INC./RIDGEFIELD-2013-AU-00384AU

PATIENT
  Age: 76 Year
  Sex: Female

DRUGS (8)
  1. PRADAXA [Suspect]
     Indication: ATRIAL FIBRILLATION
  2. PRADAXA [Suspect]
     Dosage: 2200 MG
     Dates: start: 20130317, end: 20130317
  3. SOTALOL [Suspect]
     Indication: PRODUCT USED FOR UNKNOWN INDICATION
     Dosage: 160 MG
  4. SOTALOL [Suspect]
     Dosage: 72000 MG
     Dates: start: 20130317, end: 20130317
  5. ATORVASTATIN [Concomitant]
  6. METFORMIN [Concomitant]
  7. IRBESARTAN [Concomitant]
  8. AMLODIPINE [Concomitant]

REACTIONS (1)
  - Intentional overdose [Recovered/Resolved]
